FAERS Safety Report 22022395 (Version 1)
Quarter: 2023Q1

REPORT INFORMATION
  Report Type: Spontaneous
  Country: PK (occurrence: PK)
  Receive Date: 20230222
  Receipt Date: 20230222
  Transmission Date: 20230418
  Serious: Yes (Death)
  Sender: FDA-Public Use
  Company Number: PK-PFIZER INC-2019227097

PATIENT
  Age: 51 Year
  Sex: Male

DRUGS (5)
  1. SUTENT [Suspect]
     Active Substance: SUNITINIB MALATE
     Indication: Gastrointestinal stromal tumour
     Dosage: 37.5 MG, 1X/DAY (1 MONTH)
     Route: 048
  2. SUTENT [Suspect]
     Active Substance: SUNITINIB MALATE
     Dosage: 37.5 MG, OD FOR 30 DAYS
     Route: 048
     Dates: start: 202208, end: 202212
  3. RISEK [OMEPRAZOLE] [Concomitant]
     Dosage: UNK, 1X/DAY
     Dates: start: 20200907
  4. ACEFYL COUGH [Concomitant]
  5. FEFOL VIT [Concomitant]
     Dosage: UNK, 1X/DAY
     Dates: start: 20200907

REACTIONS (1)
  - Death [Fatal]

NARRATIVE: CASE EVENT DATE: 20221201
